FAERS Safety Report 7084706-4 (Version None)
Quarter: 2010Q4

REPORT INFORMATION
  Report Type: 
  Country: None (occurrence: None)
  Receive Date: 20101104
  Receipt Date: 20101026
  Transmission Date: 20110411
  Serious: Yes (Other)
  Sender: FDA-Public Use
  Company Number: US-AMGEN-QUU433115

PATIENT

DRUGS (7)
  1. ENBREL [Suspect]
     Indication: RHEUMATOID ARTHRITIS
     Dosage: 25 MG, 2 TIMES/WK
     Route: 058
     Dates: start: 20030101
  2. VYTORIN [Concomitant]
  3. FLONASE [Concomitant]
  4. CLARITIN                           /00413701/ [Concomitant]
  5. FLAXSEED OIL [Concomitant]
  6. COQ10 [Concomitant]
  7. VITAMIN A [Concomitant]

REACTIONS (10)
  - ARTHRALGIA [None]
  - IRITIS [None]
  - JOINT SWELLING [None]
  - MOBILITY DECREASED [None]
  - MUSCULOSKELETAL STIFFNESS [None]
  - NECK PAIN [None]
  - NERVOUS SYSTEM DISORDER [None]
  - TEMPOROMANDIBULAR JOINT SYNDROME [None]
  - THERAPEUTIC RESPONSE DECREASED [None]
  - UVEITIS [None]
